FAERS Safety Report 16495318 (Version 4)
Quarter: 2020Q1

REPORT INFORMATION
  Report Type: Report from Study
  Country: CO (occurrence: CO)
  Receive Date: 20190628
  Receipt Date: 20200131
  Transmission Date: 20200409
  Serious: Yes (Hospitalization, Other)
  Sender: FDA-Public Use
  Company Number: CO-INCYTE CORPORATION-2019IN001546

PATIENT

DRUGS (4)
  1. ABACAVIR SULFATE. [Concomitant]
     Active Substance: ABACAVIR SULFATE
     Indication: HIV INFECTION
     Dosage: UNK
     Route: 065
  2. JAKAVI [Suspect]
     Active Substance: RUXOLITINIB
     Dosage: 20 MG, QD (ONCE DAILY)
     Route: 048
     Dates: start: 201909, end: 201909
  3. CELEBRA [Concomitant]
     Active Substance: CELECOXIB
     Indication: HIV INFECTION
     Dosage: UNK
     Route: 065
  4. JAKAVI [Suspect]
     Active Substance: RUXOLITINIB
     Indication: MYELOFIBROSIS
     Dosage: 20 MG, Q12H
     Route: 048
     Dates: start: 2009

REACTIONS (22)
  - Gait inability [Unknown]
  - Sleep disorder [Unknown]
  - Choking [Unknown]
  - Headache [Unknown]
  - General physical health deterioration [Unknown]
  - Muscle atrophy [Unknown]
  - Myalgia [Unknown]
  - Fatigue [Unknown]
  - Pain [Unknown]
  - Hyperhidrosis [Unknown]
  - Malaise [Unknown]
  - Discomfort [Unknown]
  - Syncope [Unknown]
  - Haemoglobin decreased [Unknown]
  - Vaginal haemorrhage [Unknown]
  - Dizziness [Unknown]
  - Nausea [Unknown]
  - Splenomegaly [Unknown]
  - Anaemia [Unknown]
  - Inflammation [Unknown]
  - Diarrhoea [Unknown]
  - Inappropriate schedule of product administration [Unknown]

NARRATIVE: CASE EVENT DATE: 20190521
